FAERS Safety Report 7887887-5 (Version None)
Quarter: 2011Q4

REPORT INFORMATION
  Report Type: 
  Country: None (occurrence: None)
  Receive Date: 20111103
  Receipt Date: 20111103
  Transmission Date: 20120403
  Serious: Yes (Other)
  Sender: FDA-Public Use
  Company Number: None

PATIENT
  Age: 58 Year
  Sex: Female
  Weight: 102.05 kg

DRUGS (1)
  1. CYMBALTA [Suspect]
     Indication: DEPRESSION
     Dosage: 30 MG
     Route: 048
     Dates: start: 20080101, end: 20110901

REACTIONS (6)
  - AFFECT LABILITY [None]
  - WITHDRAWAL SYNDROME [None]
  - TREMOR [None]
  - VERTIGO [None]
  - PALPITATIONS [None]
  - HYPERHIDROSIS [None]
